FAERS Safety Report 4713420-2 (Version None)
Quarter: 2005Q3

REPORT INFORMATION
  Report Type: 
  Country: None (occurrence: None)
  Receive Date: 20050711
  Receipt Date: 20050627
  Transmission Date: 20060218
  Serious: Yes (Death, Hospitalization)
  Sender: FDA-Public Use
  Company Number: 2005093366

PATIENT
  Age: 50 Year
  Sex: Female

DRUGS (5)
  1. ADRIAMYCIN PFS [Suspect]
     Indication: NON-HODGKIN'S LYMPHOMA
     Dosage: 70 MG, INTRAVENOUS
     Route: 042
  2. CYCLOPHOSPHAMIDE [Suspect]
     Indication: NON-HODGKIN'S LYMPHOMA
     Dosage: 1050 MG, INTRAVENOUS
     Route: 042
  3. VINCRISTINE SULFATE [Suspect]
     Indication: NON-HODGKIN'S LYMPHOMA
     Dosage: 2 MG, INTRAVENOUS
     Route: 042
  4. PREDNISONE [Suspect]
     Indication: NON-HODGKIN'S LYMPHOMA
     Dosage: 100 MG, ORAL
     Route: 048
  5. RITUXIMAB (RITUXIMAB) [Suspect]
     Indication: NON-HODGKIN'S LYMPHOMA
     Dosage: 530 MG, INTRAVENOUS
     Route: 042

REACTIONS (3)
  - HEPATIC ENCEPHALOPATHY [None]
  - HEPATIC FAILURE [None]
  - HEPATITIS [None]
